FAERS Safety Report 24008645 (Version 1)
Quarter: 2024Q2

REPORT INFORMATION
  Report Type: Report from Study
  Country: CA (occurrence: CA)
  Receive Date: 20240625
  Receipt Date: 20240625
  Transmission Date: 20240716
  Serious: Yes (Other)
  Sender: FDA-Public Use
  Company Number: CA-TEVA-VS-3202490

PATIENT
  Age: 62 Year
  Sex: Male

DRUGS (18)
  1. OXALIPLATIN [Suspect]
     Active Substance: OXALIPLATIN
     Indication: Colorectal cancer stage III
     Dosage: AS A PART OF FOLFOX
     Route: 050
  2. LEUCOVORIN [Suspect]
     Active Substance: LEUCOVORIN\LEUCOVORIN CALCIUM
     Indication: Colorectal cancer stage III
     Dosage: AS A PART OF FOLFIRI
     Route: 050
  3. LEUCOVORIN [Suspect]
     Active Substance: LEUCOVORIN\LEUCOVORIN CALCIUM
     Indication: Colorectal cancer stage III
     Dosage: AS A PART OF FOLFOX
     Route: 050
  4. IRINOTECAN [Suspect]
     Active Substance: IRINOTECAN
     Indication: Colorectal cancer stage III
     Dosage: AS A PART OF FOLFIRI
     Route: 050
  5. ACETAMINOPHEN [Concomitant]
     Active Substance: ACETAMINOPHEN
     Indication: Premedication
     Route: 048
  6. CETIRIZINE [Concomitant]
     Active Substance: CETIRIZINE HYDROCHLORIDE
     Indication: Premedication
     Route: 048
  7. DEXAMETHASONE [Concomitant]
     Active Substance: DEXAMETHASONE
     Indication: Prophylaxis of nausea and vomiting
     Route: 065
  8. DEXAMETHASONE [Concomitant]
     Active Substance: DEXAMETHASONE
     Indication: Prophylaxis of nausea and vomiting
     Dosage: DOSE INCREASED
     Route: 065
  9. ONDANSETRON [Concomitant]
     Active Substance: ONDANSETRON
     Indication: Premedication
     Route: 065
  10. IBUPROFEN [Concomitant]
     Active Substance: IBUPROFEN
     Indication: Premedication
     Route: 048
  11. FAMOTIDINE [Concomitant]
     Active Substance: FAMOTIDINE
     Indication: Premedication
     Route: 042
  12. FLUOROURACIL [Suspect]
     Active Substance: FLUOROURACIL
     Indication: Colorectal cancer stage III
     Dosage: AS A PART OF FOLFOX
     Route: 050
  13. FLUOROURACIL [Suspect]
     Active Substance: FLUOROURACIL
     Indication: Colorectal cancer stage III
     Dosage: AS A PART OF FOLFIRI
     Route: 050
  14. MONTELUKAST [Concomitant]
     Active Substance: MONTELUKAST SODIUM
     Indication: Premedication
     Route: 048
  15. ANAKINRA [Concomitant]
     Active Substance: ANAKINRA
     Indication: Premedication
     Dosage: ANAKINRA WAS GIVEN TWICE (BEFORE AND AFTER DESENSITIZATION)
     Route: 058
  16. ANAKINRA [Concomitant]
     Active Substance: ANAKINRA
     Indication: Premedication
     Route: 058
  17. SALINE [Concomitant]
     Active Substance: SODIUM CHLORIDE
     Indication: Premedication
     Dosage: INTRAVENOUS FLUID 500ML/HOUR
     Route: 042
  18. SALINE [Concomitant]
     Active Substance: SODIUM CHLORIDE
     Indication: Premedication
     Dosage: INTRAVENOUS FLUID AT 100ML/HOUR
     Route: 042

REACTIONS (4)
  - Chills [Recovered/Resolved]
  - Drug hypersensitivity [Recovered/Resolved]
  - Drug ineffective [Unknown]
  - Pyrexia [Recovered/Resolved]
